FAERS Safety Report 19626123 (Version 1)
Quarter: 2021Q3

REPORT INFORMATION
  Report Type: Spontaneous
  Country: US (occurrence: US)
  Receive Date: 20210728
  Receipt Date: 20210728
  Transmission Date: 20211014
  Serious: No
  Sender: FDA-Public Use
  Company Number: US-MYLANLABS-2021M1033332

PATIENT
  Sex: Female

DRUGS (1)
  1. PEG?3350 AND ELECTROLYTES [Suspect]
     Active Substance: POLYETHYLENE GLYCOL 3350\POTASSIUM CHLORIDE\SODIUM BICARBONATE\SODIUM CHLORIDE\SODIUM SULFATE
     Indication: COLONOSCOPY
     Dosage: 4000 MILLILITER, ONCE
     Route: 048
     Dates: start: 20170323, end: 20170323

REACTIONS (4)
  - Feeling of body temperature change [Unknown]
  - Adverse reaction [Unknown]
  - Lip swelling [Unknown]
  - Discomfort [Unknown]
